FAERS Safety Report 13839223 (Version 2)
Quarter: 2017Q3

REPORT INFORMATION
  Report Type: Spontaneous
  Country: JP (occurrence: JP)
  Receive Date: 20170807
  Receipt Date: 20170822
  Transmission Date: 20171127
  Serious: Yes (Life-Threatening, Hospitalization, Other)
  Sender: FDA-Public Use
  Company Number: JP-APOTEX-2017AP016276

PATIENT

DRUGS (4)
  1. ETIZOLAM [Suspect]
     Active Substance: ETIZOLAM
     Dosage: 1 MG, 1D
     Route: 048
     Dates: start: 20160527
  2. PAXIL CR [Suspect]
     Active Substance: PAROXETINE HYDROCHLORIDE
     Indication: DEPRESSION
     Dosage: 12.5 MG, 1D
     Route: 048
  3. PAXIL CR [Suspect]
     Active Substance: PAROXETINE HYDROCHLORIDE
     Indication: DEPRESSION
     Dosage: 12.5 MG, 1D
     Route: 048
     Dates: start: 20160527
  4. ETIZOLAM [Suspect]
     Active Substance: ETIZOLAM
     Indication: DEPRESSION
     Dosage: 1 MG, 1D
     Route: 048

REACTIONS (14)
  - Confusional state [Unknown]
  - Neuroleptic malignant syndrome [Recovered/Resolved]
  - Pyrexia [Unknown]
  - Enzyme inhibition [Unknown]
  - Hyperhidrosis [Unknown]
  - Blood creatine phosphokinase increased [Recovering/Resolving]
  - White blood cell count increased [Recovering/Resolving]
  - Drug level increased [Unknown]
  - Depressed level of consciousness [Recovering/Resolving]
  - Overdose [Unknown]
  - Hepatic enzyme increased [Recovering/Resolving]
  - Musculoskeletal stiffness [Recovering/Resolving]
  - Altered state of consciousness [Recovering/Resolving]
  - Urinary incontinence [Unknown]

NARRATIVE: CASE EVENT DATE: 20160528
